FAERS Safety Report 5330098-8 (Version None)
Quarter: 2007Q2

REPORT INFORMATION
  Report Type: 
  Country: None (occurrence: None)
  Receive Date: 20070521
  Receipt Date: 20070509
  Transmission Date: 20071010
  Serious: Yes (Hospitalization, Disabling)
  Sender: FDA-Public Use
  Company Number: US-MERCK-0704USA03542

PATIENT
  Age: 74 Year
  Sex: Female

DRUGS (4)
  1. FOSAMAX [Suspect]
     Route: 048
     Dates: start: 20020101
  2. PREDNISONE [Concomitant]
     Indication: LUNG DISORDER
     Route: 065
  3. [THERAPY UNSPECIFIED] [Concomitant]
     Route: 065
  4. GLUCOTROL [Concomitant]
     Route: 065

REACTIONS (2)
  - OSTEONECROSIS [None]
  - PERIODONTAL DISEASE [None]
